FAERS Safety Report 4789612-3 (Version None)
Quarter: 2005Q4

REPORT INFORMATION
  Report Type: 
  Country: None (occurrence: None)
  Receive Date: 20051006
  Receipt Date: 20050915
  Transmission Date: 20060501
  Serious: Yes (Hospitalization)
  Sender: FDA-Public Use
  Company Number: JP-BRISTOL-MYERS SQUIBB COMPANY-13111364

PATIENT
  Age: 58 Year
  Sex: Female

DRUGS (8)
  1. PARAPLATIN [Suspect]
     Indication: UTERINE CANCER
     Route: 042
     Dates: start: 20050909, end: 20050909
  2. TAXOL [Suspect]
     Indication: UTERINE CANCER
     Route: 042
     Dates: start: 20050909, end: 20050909
  3. NAPROXEN [Suspect]
     Route: 048
     Dates: start: 20050830, end: 20050912
  4. SCOPOLAMINE BUTYLBROMIDE [Suspect]
     Route: 048
     Dates: start: 20050830, end: 20050912
  5. CARVEDILOL [Concomitant]
     Route: 048
     Dates: start: 20050720, end: 20050912
  6. BENIDIPINE HCL [Concomitant]
     Route: 048
     Dates: start: 20050720, end: 20050912
  7. LOSARTAN POTASSIUM [Concomitant]
     Route: 048
     Dates: start: 20050720, end: 20050912
  8. BROTIZOLAM [Concomitant]
     Route: 048
     Dates: start: 20050830, end: 20050912

REACTIONS (1)
  - COLITIS ISCHAEMIC [None]
